FAERS Safety Report 5815318-5 (Version None)
Quarter: 2008Q3

REPORT INFORMATION
  Report Type: 
  Country: None (occurrence: None)
  Receive Date: 20080718
  Receipt Date: 20080708
  Transmission Date: 20090109
  Serious: Yes (Other)
  Sender: FDA-Public Use
  Company Number: US-PFIZER INC-2007098843

PATIENT
  Sex: Female
  Weight: 60.3 kg

DRUGS (11)
  1. CHANTIX [Suspect]
     Indication: EX-TOBACCO USER
  2. CHANTIX [Suspect]
     Indication: NICOTINE DEPENDENCE
  3. CHANTIX [Suspect]
     Indication: TOBACCO USER
  4. DARVOCET [Concomitant]
  5. PLAVIX [Concomitant]
  6. NORFLEX [Concomitant]
  7. VERAPAMIL [Concomitant]
  8. LASIX [Concomitant]
  9. DIPYRIDAMOLE [Concomitant]
  10. QUININE SULFATE [Concomitant]
  11. ALL OTHER THERAPEUTIC PRODUCTS [Concomitant]

REACTIONS (13)
  - ABASIA [None]
  - CHEST PAIN [None]
  - DRUG INTOLERANCE [None]
  - DYSSTASIA [None]
  - FATIGUE [None]
  - HEADACHE [None]
  - HYPOAESTHESIA [None]
  - IMPAIRED DRIVING ABILITY [None]
  - MALAISE [None]
  - MEMORY IMPAIRMENT [None]
  - NERVOUSNESS [None]
  - RENAL PAIN [None]
  - URINARY INCONTINENCE [None]
